FAERS Safety Report 4308416-9 (Version None)
Quarter: 2004Q1

REPORT INFORMATION
  Report Type: 
  Country: None (occurrence: None)
  Receive Date: 20040301
  Receipt Date: 20040218
  Transmission Date: 20041129
  Serious: Yes (Death)
  Sender: FDA-Public Use
  Company Number: WAES 0402GBR00194

PATIENT
  Age: 40 Year
  Sex: Female

DRUGS (3)
  1. [THERAPY UNSPECIFIED] [Concomitant]
  2. ACETAMINOPHEN AND PROPOXYPHENE HYDROCHLORIDE [Suspect]
  3. COZAAR [Suspect]
     Indication: HYPERTENSION
     Route: 048
     Dates: start: 20031001, end: 20031201

REACTIONS (2)
  - INTENTIONAL OVERDOSE [None]
  - SLEEP DISORDER [None]
